FAERS Safety Report 9896747 (Version 1)
Quarter: 2014Q1

REPORT INFORMATION
  Report Type: Spontaneous
  Country: US (occurrence: US)
  Receive Date: 20140213
  Receipt Date: 20140213
  Transmission Date: 20141002
  Serious: No
  Sender: FDA-Public Use
  Company Number: US-BRISTOL-MYERS SQUIBB COMPANY-19178532

PATIENT
  Age: 74 Year
  Sex: Male
  Weight: 94.33 kg

DRUGS (14)
  1. ABATACEPT SUBQ INJECTION 125MG/ML [Suspect]
     Dosage: 1 DF=125 MG/ML
     Route: 058
  2. EFFEXOR [Concomitant]
     Dosage: TABS
  3. METHOTREXATE TABS [Concomitant]
  4. COUMADIN TABS 1 MG [Concomitant]
  5. ADVICOR TABS [Concomitant]
     Dosage: 1 DF=750-20MG
  6. NIASPAN [Concomitant]
     Dosage: TAB 1000 ER
  7. LISINOPRIL [Concomitant]
     Dosage: TABS
  8. DIAZEPAM [Concomitant]
     Dosage: TAB
  9. METOPROLOL [Concomitant]
     Dosage: TAB 50 MG ER
  10. DILTIAZEM CD [Concomitant]
     Dosage: CAPS 120 MG CD
  11. PREVACID [Concomitant]
     Dosage: GRA
  12. ASPIRIN [Concomitant]
     Dosage: ASPIRIN TAB 81MG EC
  13. FISH OIL [Concomitant]
     Dosage: CAPS
  14. IRON TABLETS [Concomitant]

REACTIONS (7)
  - Hepatic function abnormal [Unknown]
  - Anaemia [Unknown]
  - Contusion [Unknown]
  - Fall [Unknown]
  - Neck pain [Unknown]
  - Excoriation [Unknown]
  - Removal of foreign body [Unknown]
